FAERS Safety Report 4745759-9 (Version None)
Quarter: 2005Q3

REPORT INFORMATION
  Report Type: 
  Country: None (occurrence: None)
  Receive Date: 20050816
  Receipt Date: 20050804
  Transmission Date: 20060218
  Serious: Yes (Death, Hospitalization)
  Sender: FDA-Public Use
  Company Number: FR-BRISTOL-MYERS SQUIBB COMPANY-13063375

PATIENT
  Age: 76 Year
  Sex: Male

DRUGS (4)
  1. COUMADIN [Suspect]
     Route: 048
     Dates: end: 20031109
  2. LAMALINE [Concomitant]
  3. TEGRETOL [Concomitant]
  4. KERLONE [Concomitant]

REACTIONS (4)
  - CEREBRAL HAEMATOMA [None]
  - COMA [None]
  - INTERNATIONAL NORMALISED RATIO INCREASED [None]
  - INTRAVENTRICULAR HAEMORRHAGE [None]
